FAERS Safety Report 16023104 (Version 2)
Quarter: 2019Q2

REPORT INFORMATION
  Report Type: Spontaneous
  Country: BR (occurrence: BR)
  Receive Date: 20190301
  Receipt Date: 20190416
  Transmission Date: 20190711
  Serious: Yes (Other)
  Sender: FDA-Public Use
  Company Number: BR-ASTRAZENECA-2019SE33619

PATIENT
  Age: 61 Year
  Sex: Male

DRUGS (1)
  1. SYMBICORT [Suspect]
     Active Substance: BUDESONIDE\FORMOTEROL FUMARATE DIHYDRATE
     Indication: ASTHMA
     Dosage: 320/9 MCG UNKNOWN UNKNOWN
     Route: 055
     Dates: start: 201806

REACTIONS (2)
  - Prostatic specific antigen increased [Not Recovered/Not Resolved]
  - Central obesity [Not Recovered/Not Resolved]

NARRATIVE: CASE EVENT DATE: 20180720
